FAERS Safety Report 5160871-0 (Version None)
Quarter: 2006Q4

REPORT INFORMATION
  Report Type: 
  Country: None (occurrence: None)
  Receive Date: 20061130
  Receipt Date: 20061127
  Transmission Date: 20070319
  Serious: Yes (Hospitalization)
  Sender: FDA-Public Use
  Company Number: 2006AC02211

PATIENT
  Age: 414 Month
  Sex: Female
  Weight: 64 kg

DRUGS (2)
  1. SELOKEEN ZOC [Suspect]
     Indication: MIGRAINE
     Route: 048
     Dates: start: 20040101
  2. MICROGYNON [Suspect]
     Indication: CONTRACEPTION
     Dates: start: 20040101

REACTIONS (2)
  - ABDOMINAL PAIN LOWER [None]
  - MUSCLE CONTRACTIONS INVOLUNTARY [None]
